FAERS Safety Report 9721587 (Version 1)
Quarter: 2013Q4

REPORT INFORMATION
  Report Type: Spontaneous
  Country: US (occurrence: US)
  Receive Date: 20131201
  Receipt Date: 20131201
  Transmission Date: 20140711
  Serious: No
  Sender: FDA-Public Use
  Company Number: US-009507513-1312USA000008

PATIENT
  Sex: 0

DRUGS (3)
  1. CLARITIN [Suspect]
     Indication: SINUSITIS
  2. CLARITIN [Suspect]
     Indication: RHINORRHOEA
  3. CLARITIN [Suspect]
     Indication: NASAL CONGESTION

REACTIONS (4)
  - Nausea [Unknown]
  - Unevaluable event [Unknown]
  - Drug ineffective for unapproved indication [Unknown]
  - Off label use [Unknown]
